FAERS Safety Report 8994954 (Version 1)
Quarter: 2012Q4

REPORT INFORMATION
  Report Type: Spontaneous
  Country: US (occurrence: None)
  Receive Date: 20121228
  Receipt Date: 20121228
  Transmission Date: 20130627
  Serious: Yes (Death, Hospitalization, Disabling, Other)
  Sender: FDA-Public Use
  Company Number: None

PATIENT
  Age: 72 Year
  Sex: Male
  Weight: 81.65 kg

DRUGS (1)
  1. PREDNISOLONE ACETATE [Suspect]
     Indication: EYE INFLAMMATION
     Dosage: 1 drop four times daily ophthalmic
     Route: 047
     Dates: start: 20120829, end: 20121205

REACTIONS (3)
  - Abdominal discomfort [None]
  - Gastritis [None]
  - Precancerous cells present [None]
